FAERS Safety Report 4445892-5 (Version None)
Quarter: 2004Q3

REPORT INFORMATION
  Report Type: 
  Country: None (occurrence: None)
  Receive Date: 20040903
  Receipt Date: 20040825
  Transmission Date: 20050211
  Serious: Yes (Life-Threatening, Hospitalization)
  Sender: FDA-Public Use
  Company Number: 2004230591US

PATIENT
  Sex: Female

DRUGS (3)
  1. BEXTRA [Suspect]
  2. CELECOXIB (CELECOXIB)CAPSULE [Suspect]
  3. VIOXX [Suspect]

REACTIONS (3)
  - ASTHMA [None]
  - CONDITION AGGRAVATED [None]
  - RESPIRATORY ARREST [None]
